FAERS Safety Report 19693333 (Version 2)
Quarter: 2021Q3

REPORT INFORMATION
  Report Type: Spontaneous
  Country: US (occurrence: US)
  Receive Date: 20210812
  Receipt Date: 20210819
  Transmission Date: 20211014
  Serious: Yes (Hospitalization)
  Sender: FDA-Public Use
  Company Number: US-SA-2021SA162368

PATIENT
  Age: 13 Year
  Sex: Male

DRUGS (2)
  1. CEREZYME [Suspect]
     Active Substance: IMIGLUCERASE
     Indication: GAUCHER^S DISEASE
     Dosage: 4800 U, QW
     Route: 042
     Dates: start: 20100413
  2. CEREZYME [Suspect]
     Active Substance: IMIGLUCERASE
     Dosage: 4800 U, QW
     Route: 042
     Dates: start: 20140312

REACTIONS (3)
  - Product dose omission issue [Unknown]
  - Hospitalisation [Unknown]
  - Inappropriate schedule of product administration [Unknown]

NARRATIVE: CASE EVENT DATE: 20100413
